FAERS Safety Report 6535730-9 (Version None)
Quarter: 2010Q1

REPORT INFORMATION
  Report Type: 
  Country: None (occurrence: None)
  Receive Date: 20100113
  Receipt Date: 20091218
  Transmission Date: 20100710
  Serious: Yes (Disabling, Other)
  Sender: FDA-Public Use
  Company Number: PHEH2009US16295

PATIENT
  Sex: Male

DRUGS (8)
  1. DIOVAN [Suspect]
     Indication: HYPERTENSION
     Dosage: 320 MG, QD
     Route: 048
     Dates: start: 20090821, end: 20091021
  2. DIOVAN [Suspect]
     Dosage: 320 MG, UNK
  3. CRESTOR [Suspect]
     Dosage: 5 MG, QD
     Route: 048
     Dates: start: 20090821, end: 20091021
  4. CRESTOR [Suspect]
     Dosage: UNK. QD
     Dates: end: 20091001
  5. NIACIN [Suspect]
     Dosage: UNK
     Route: 048
     Dates: end: 20091021
  6. ATENOLOL [Suspect]
     Dosage: 50 MG, UNK
  7. ASPIRIN [Concomitant]
     Dosage: 81 MG, UNK
  8. NIASPAN [Concomitant]
     Dosage: 500 MG, QD
     Route: 048
     Dates: start: 20090821, end: 20091021

REACTIONS (18)
  - ABASIA [None]
  - ARTHRALGIA [None]
  - BACK INJURY [None]
  - BLOOD CREATINE PHOSPHOKINASE INCREASED [None]
  - FALL [None]
  - FATIGUE [None]
  - HEADACHE [None]
  - HYPOAESTHESIA [None]
  - LAZINESS [None]
  - MUSCULAR WEAKNESS [None]
  - MYALGIA [None]
  - OEDEMA PERIPHERAL [None]
  - PERIORBITAL OEDEMA [None]
  - SNEEZING [None]
  - SOMNOLENCE [None]
  - SWELLING FACE [None]
  - WEIGHT DECREASED [None]
  - WEIGHT INCREASED [None]
